FAERS Safety Report 8840212 (Version 1)
Quarter: 2012Q4

REPORT INFORMATION
  Report Type: 
  Country: DE (occurrence: DE)
  Receive Date: 20121015
  Receipt Date: 20121015
  Transmission Date: 20130627
  Serious: Yes (Hospitalization)
  Sender: FDA-Public Use
  Company Number: DE-TEVA-358351GER

PATIENT
  Age: 89 Year
  Sex: Female
  Weight: 48 kg

DRUGS (6)
  1. BISOPROLOL [Suspect]
     Indication: MYOCARDIAL INFARCTION
     Dosage: 5 Milligram Daily; 1-0-1
     Route: 048
     Dates: start: 20120513
  2. BISOPROLOL [Interacting]
     Dosage: 2.5 Milligram Daily;
     Route: 048
  3. MODIP [Interacting]
     Indication: HYPERTENSION
     Route: 048
     Dates: start: 201207
  4. BRILIQUE [Concomitant]
  5. ASS 100 [Concomitant]
  6. RAMIPRIL [Concomitant]

REACTIONS (3)
  - Extrasystoles [Recovered/Resolved]
  - Heart rate irregular [Recovered/Resolved]
  - Drug interaction [Unknown]
